FAERS Safety Report 5627660-1 (Version None)
Quarter: 2008Q1

REPORT INFORMATION
  Report Type: 
  Country: None (occurrence: None)
  Receive Date: 20080215
  Receipt Date: 20080207
  Transmission Date: 20080703
  Serious: Yes (Other)
  Sender: FDA-Public Use
  Company Number: US-JNJFOC-20080202172

PATIENT
  Age: 67 Year
  Sex: Female

DRUGS (13)
  1. REMICADE [Suspect]
     Indication: RHEUMATOID ARTHRITIS
     Route: 042
  2. LASIX [Concomitant]
  3. METHOTREXATE [Concomitant]
  4. ACTONEL [Concomitant]
  5. COREG [Concomitant]
  6. COZAAR [Concomitant]
  7. FOLIC ACID [Concomitant]
  8. GLIPIZIDE [Concomitant]
  9. NORVASC [Concomitant]
  10. PREDNISONE TAB [Concomitant]
  11. PRILOSEC [Concomitant]
  12. FISH OIL [Concomitant]
  13. RESTASIS [Concomitant]

REACTIONS (1)
  - GASTROINTESTINAL CARCINOMA [None]
